APPROVED DRUG PRODUCT: DEFEROXAMINE MESYLATE
Active Ingredient: DEFEROXAMINE MESYLATE
Strength: 500MG/VIAL
Dosage Form/Route: INJECTABLE;INJECTION
Application: A076019 | Product #001 | TE Code: AP
Applicant: HOSPIRA INC
Approved: Mar 17, 2004 | RLD: No | RS: No | Type: RX